FAERS Safety Report 9326158 (Version 2)
Quarter: 2014Q1

REPORT INFORMATION
  Report Type: Spontaneous
  Country: None (occurrence: US)
  Receive Date: 20130604
  Receipt Date: 20140113
  Transmission Date: 20141002
  Serious: No
  Sender: FDA-Public Use
  Company Number: US-TEVA-409886USA

PATIENT
  Age: 22 Year
  Sex: Male

DRUGS (2)
  1. QNASL [Suspect]
     Indication: CHRONIC SINUSITIS
     Route: 045
     Dates: start: 2013
  2. QNASL [Suspect]
     Indication: NASAL POLYPS

REACTIONS (2)
  - Chapped lips [Recovered/Resolved]
  - Off label use [Recovered/Resolved]
